FAERS Safety Report 5374856-2 (Version None)
Quarter: 2007Q2

REPORT INFORMATION
  Report Type: 
  Country: None (occurrence: None)
  Receive Date: 20070629
  Receipt Date: 20070621
  Transmission Date: 20071010
  Serious: Yes (Death, Hospitalization)
  Sender: FDA-Public Use
  Company Number: B0476793A

PATIENT
  Age: 46 Year
  Sex: Male

DRUGS (2)
  1. PAROXETINE HCL [Suspect]
     Route: 048
     Dates: end: 20060620
  2. ASPIRIN [Suspect]
     Indication: ARTERIAL DISORDER
     Route: 048
     Dates: end: 20060620

REACTIONS (7)
  - ANEURYSM [None]
  - HEADACHE [None]
  - HYDROCEPHALUS [None]
  - INTRAVENTRICULAR HAEMORRHAGE [None]
  - MENINGORRHAGIA [None]
  - NAUSEA [None]
  - PHOTOPHOBIA [None]
